FAERS Safety Report 8485814 (Version 9)
Quarter: 2013Q3

REPORT INFORMATION
  Report Type: Spontaneous
  Country: US (occurrence: US)
  Receive Date: 20120330
  Receipt Date: 20130810
  Transmission Date: 20140515
  Serious: Yes (Hospitalization, Disabling, Other)
  Sender: FDA-Public Use
  Company Number: US-009507513-1203USA03306

PATIENT
  Sex: Female
  Weight: 63.95 kg

DRUGS (12)
  1. FOSAMAX [Suspect]
     Dosage: 70 MG, QW
     Route: 048
     Dates: start: 1998, end: 201104
  2. FOSAMAX [Suspect]
     Dosage: 70 MG, QD
     Route: 048
     Dates: start: 20011205
  3. FOSAMAX [Suspect]
     Dosage: 40 MG, UNK
     Route: 048
  4. FOSAMAX [Suspect]
     Dosage: 70 MG, UNK
     Route: 048
     Dates: start: 20091230, end: 20120602
  5. CALCIUM (UNSPECIFIED) [Concomitant]
     Indication: OSTEOPOROSIS
  6. VITAMIN D (UNSPECIFIED) [Concomitant]
     Indication: OSTEOPOROSIS
  7. NIACIN [Concomitant]
     Dosage: 1000 MG, QD
  8. ECOTRIN [Concomitant]
     Dosage: 325 MG, QD
  9. PROCARDIA XL [Concomitant]
     Dosage: 60 MG, QD
  10. FEOSOL [Concomitant]
     Dosage: UNK, QD
  11. HIGROTON [Concomitant]
     Dosage: 25 MG, QD
  12. LOPRESSOR [Concomitant]
     Dosage: 75 MG, BID

REACTIONS (51)
  - Femur fracture [Not Recovered/Not Resolved]
  - Open reduction of fracture [Recovering/Resolving]
  - Osteoporosis [Not Recovered/Not Resolved]
  - Multiple fractures [Not Recovered/Not Resolved]
  - Femur fracture [Not Recovered/Not Resolved]
  - Wound drainage [Recovering/Resolving]
  - Low turnover osteopathy [Not Recovered/Not Resolved]
  - Clostridium difficile colitis [Recovered/Resolved]
  - Viral infection [Unknown]
  - Cerebrovascular accident [Unknown]
  - Myocardial infarction [Unknown]
  - Osteoarthritis [Unknown]
  - Breast cancer [Unknown]
  - Deafness neurosensory [Unknown]
  - Cerebrovascular accident [Unknown]
  - Gastric ulcer [Unknown]
  - Vertigo [Unknown]
  - Carotid bruit [Unknown]
  - Hypertension [Unknown]
  - Coronary artery disease [Unknown]
  - Asthma [Unknown]
  - Hyperthyroidism [Unknown]
  - Chronic obstructive pulmonary disease [Not Recovered/Not Resolved]
  - Hepatitis [Unknown]
  - Transient ischaemic attack [Unknown]
  - Deep vein thrombosis [Unknown]
  - Phlebitis [Unknown]
  - Hypothyroidism [Unknown]
  - Toxic nodular goitre [Unknown]
  - Inappropriate schedule of drug administration [Unknown]
  - Spinal osteoarthritis [Unknown]
  - Dislocation of vertebra [Unknown]
  - Osteopenia [Unknown]
  - Diabetes mellitus [Unknown]
  - Overdose [Unknown]
  - Blood cholesterol increased [Unknown]
  - Facial bones fracture [Unknown]
  - Fall [Unknown]
  - Epistaxis [Recovered/Resolved]
  - Excoriation [Unknown]
  - Ear disorder [Unknown]
  - Cerebrovascular disorder [Unknown]
  - Herpes zoster [Unknown]
  - Urinary tract infection [Unknown]
  - Blood potassium abnormal [Unknown]
  - Arthritis [Unknown]
  - Urine leukocyte esterase positive [Unknown]
  - Treatment noncompliance [Unknown]
  - Fall [Unknown]
  - Dizziness [Unknown]
  - Arthralgia [Unknown]
